FAERS Safety Report 8117965-7 (Version None)
Quarter: 2012Q1

REPORT INFORMATION
  Report Type: 
  Country: None (occurrence: None)
  Receive Date: 20120201
  Receipt Date: 20120120
  Transmission Date: 20120608
  Serious: Yes (Hospitalization)
  Sender: FDA-Public Use
  Company Number: 1172095

PATIENT
  Age: 60 Year
  Sex: Female

DRUGS (6)
  1. (URBASON /00049601/) [Concomitant]
  2. PACLITAXEL [Suspect]
     Indication: ENDOMETRIAL CANCER
     Dosage: 308 MG MILLIGRAM(S), INTRAVENOUS (NOT OTHERWISE SPECIFIED)
     Route: 042
     Dates: start: 20111214, end: 20120104
  3. (RANIDIL) [Concomitant]
  4. CARBOPLATIN [Concomitant]
  5. (NAVOBAN) [Concomitant]
  6. DEXAMETHASONE SODIUM PHOSPHATE [Concomitant]

REACTIONS (2)
  - DYSPNOEA [None]
  - GENERALISED ERYTHEMA [None]
